FAERS Safety Report 9972374 (Version 1)
Quarter: 2014Q1

REPORT INFORMATION
  Report Type: Report from Study
  Country: US (occurrence: US)
  Receive Date: 20140306
  Receipt Date: 20140306
  Transmission Date: 20141002
  Serious: Yes (Hospitalization)
  Sender: FDA-Public Use
  Company Number: US-ABBVIE-13P-163-1151466-00

PATIENT
  Age: 65 Year
  Sex: Male
  Weight: 97.61 kg

DRUGS (12)
  1. HUMIRA [Suspect]
     Indication: PSORIATIC ARTHROPATHY
     Route: 058
     Dates: start: 201307, end: 201307
  2. CLOPIDOGREL [Concomitant]
     Indication: ANTICOAGULANT THERAPY
  3. LOSARTAN / HYDROCHLOROTHIAZID STADA [Concomitant]
     Indication: PRODUCT USED FOR UNKNOWN INDICATION
  4. METOPROLOL [Concomitant]
     Indication: HEART RATE IRREGULAR
  5. NIASPAN [Concomitant]
     Indication: BLOOD CHOLESTEROL INCREASED
  6. PRAVASTATIN [Concomitant]
     Indication: BLOOD CHOLESTEROL INCREASED
  7. NITROSTAT [Concomitant]
     Indication: CHEST PAIN
  8. ASPIRIN [Concomitant]
     Indication: ANTICOAGULANT THERAPY
  9. FOLIC ACID [Concomitant]
     Indication: PSORIATIC ARTHROPATHY
  10. METHOTREXATE [Concomitant]
     Indication: PSORIATIC ARTHROPATHY
  11. VITAMIN D NOS [Concomitant]
     Indication: VITAMIN SUPPLEMENTATION
  12. POTASSIUM [Concomitant]
     Indication: VITAMIN SUPPLEMENTATION

REACTIONS (2)
  - Myocardial infarction [Recovered/Resolved]
  - Coronary artery occlusion [Recovered/Resolved]
